FAERS Safety Report 17943912 (Version 1)
Quarter: 2020Q2

REPORT INFORMATION
  Report Type: Spontaneous
  Country: BG (occurrence: BG)
  Receive Date: 20200625
  Receipt Date: 20200625
  Transmission Date: 20200714
  Serious: Yes (Other)
  Sender: FDA-Public Use
  Company Number: BG-ROCHE-2629692

PATIENT
  Age: 83 Year
  Sex: Male

DRUGS (5)
  1. SUZASTOR [Concomitant]
     Indication: HYPERLIPIDAEMIA
     Route: 048
  2. UROREC [Concomitant]
     Active Substance: SILODOSIN
     Indication: BENIGN PROSTATIC HYPERPLASIA
     Route: 048
  3. TAMIFLU [Suspect]
     Active Substance: OSELTAMIVIR PHOSPHATE
     Indication: DYSPNOEA
     Route: 048
     Dates: start: 20200619, end: 20200622
  4. CAVINTON [Concomitant]
     Active Substance: VINPOCETINE
     Route: 048
  5. NEBILET [Concomitant]
     Active Substance: NEBIVOLOL
     Indication: HYPERTENSION
     Route: 048

REACTIONS (4)
  - Dyspnoea [Recovering/Resolving]
  - Nausea [Recovering/Resolving]
  - Drug ineffective [Unknown]
  - Headache [Recovering/Resolving]

NARRATIVE: CASE EVENT DATE: 20200621
